FAERS Safety Report 4709696-8 (Version None)
Quarter: 2005Q3

REPORT INFORMATION
  Report Type: 
  Country: None (occurrence: None)
  Receive Date: 20050707
  Receipt Date: 20050620
  Transmission Date: 20060218
  Serious: Yes (Death, Hospitalization)
  Sender: FDA-Public Use
  Company Number: USA0506100859

PATIENT
  Age: 80 Year
  Sex: Female

DRUGS (1)
  1. FORTEO [Suspect]
     Dates: start: 20040901

REACTIONS (1)
  - CEREBROVASCULAR ACCIDENT [None]
